FAERS Safety Report 7661977-4 (Version None)
Quarter: 2011Q3

REPORT INFORMATION
  Report Type: 
  Country: None (occurrence: None)
  Receive Date: 20110805
  Receipt Date: 20101201
  Transmission Date: 20111222
  Serious: No
  Sender: FDA-Public Use
  Company Number: US-ABBOTT-10P-163-0688820-00

PATIENT
  Sex: Female
  Weight: 68.554 kg

DRUGS (5)
  1. NIASPAN [Suspect]
     Indication: BLOOD CHOLESTEROL INCREASED
  2. SYNTHROID [Concomitant]
     Indication: PRODUCT USED FOR UNKNOWN INDICATION
  3. RAMIPRIL [Concomitant]
     Indication: PRODUCT USED FOR UNKNOWN INDICATION
  4. NIASPAN [Suspect]
     Indication: LOW DENSITY LIPOPROTEIN INCREASED
     Dosage: AT BEDTIME
     Dates: start: 20101101
  5. NIASPAN [Suspect]
     Indication: HIGH DENSITY LIPOPROTEIN DECREASED

REACTIONS (1)
  - FLUSHING [None]
